FAERS Safety Report 9186376 (Version 1)
Quarter: 2013Q1

REPORT INFORMATION
  Report Type: Spontaneous
  Country: GB (occurrence: GB)
  Receive Date: 20130325
  Receipt Date: 20130325
  Transmission Date: 20140127
  Serious: Yes (Hospitalization, Disabling, Other)
  Sender: FDA-Public Use
  Company Number: GB-BAYER-2013-034112

PATIENT
  Age: 44 Year
  Sex: Female
  Weight: 60.32 kg

DRUGS (6)
  1. CIPROFLOXACIN [Suspect]
     Indication: URINARY TRACT INFECTION
     Dosage: 250 MG, BID 2/1 DAYS
     Route: 048
     Dates: start: 20121006
  2. BECONASE AQUEOUS [Concomitant]
  3. BETNOVATE C [Concomitant]
     Indication: ECZEMA
  4. HYDROCORTISON [Concomitant]
  5. QVAR [Concomitant]
  6. CORTICOSTEROID NOS [Concomitant]
     Indication: ASTHMA

REACTIONS (14)
  - Abdominal pain [Not Recovered/Not Resolved]
  - Anxiety [Not Recovered/Not Resolved]
  - Cognitive disorder [Not Recovered/Not Resolved]
  - Disturbance in attention [Not Recovered/Not Resolved]
  - Depersonalisation [Not Recovered/Not Resolved]
  - Mental impairment [Not Recovered/Not Resolved]
  - Disorientation [Not Recovered/Not Resolved]
  - Dizziness [Not Recovered/Not Resolved]
  - Feeling abnormal [Not Recovered/Not Resolved]
  - Memory impairment [Not Recovered/Not Resolved]
  - Mobility decreased [Not Recovered/Not Resolved]
  - Arthralgia [Not Recovered/Not Resolved]
  - Sensation of pressure [Not Recovered/Not Resolved]
  - Tendonitis [Not Recovered/Not Resolved]
